FAERS Safety Report 16957319 (Version 2)
Quarter: 2019Q4

REPORT INFORMATION
  Report Type: Spontaneous
  Country: DE (occurrence: DE)
  Receive Date: 20191024
  Receipt Date: 20191106
  Transmission Date: 20200122
  Serious: Yes (Other)
  Sender: FDA-Public Use
  Company Number: DE-BAUSCH-BL-2019-058838

PATIENT
  Age: 27 Year
  Sex: Female

DRUGS (7)
  1. AZATHIOPRINE. [Suspect]
     Active Substance: AZATHIOPRINE
     Indication: COGAN^S SYNDROME
     Route: 065
     Dates: start: 2008, end: 2010
  2. ACYCLOVIR. [Concomitant]
     Active Substance: ACYCLOVIR
     Indication: LABYRINTHITIS
     Dates: start: 2007
  3. PREDNISOLONE. [Suspect]
     Active Substance: PREDNISOLONE
     Indication: COGAN^S SYNDROME
     Route: 065
  4. PREDNISOLONE. [Suspect]
     Active Substance: PREDNISOLONE
     Dosage: HIGH DOSES
     Route: 065
     Dates: start: 2008
  5. PREDNISOLONE. [Suspect]
     Active Substance: PREDNISOLONE
     Dosage: DOSE WAS REDUCED GRADUALLY
     Route: 065
     Dates: start: 2008
  6. PIRACETAM [Concomitant]
     Active Substance: PIRACETAM
     Indication: LABYRINTHITIS
     Dates: start: 2007
  7. AZATHIOPRINE. [Suspect]
     Active Substance: AZATHIOPRINE
     Dosage: DOSE REDUCED GRADUALLY AND DISCONTINUED
     Route: 065
     Dates: end: 2010

REACTIONS (4)
  - Osteopenia [Unknown]
  - Hepatic enzyme increased [Unknown]
  - Cushingoid [Unknown]
  - Cataract [Unknown]
